FAERS Safety Report 10884855 (Version 1)
Quarter: 2015Q1

REPORT INFORMATION
  Report Type: Spontaneous
  Country: ES (occurrence: ES)
  Receive Date: 20150304
  Receipt Date: 20150304
  Transmission Date: 20150721
  Serious: Yes (Other)
  Sender: FDA-Public Use
  Company Number: ES-JNJFOC-20150214767

PATIENT
  Age: 33 Year
  Sex: Female

DRUGS (6)
  1. LORAZEPAM. [Concomitant]
     Active Substance: LORAZEPAM
     Indication: PRODUCT USED FOR UNKNOWN INDICATION
     Route: 065
  2. LORMETAZEPAM [Concomitant]
     Active Substance: LORMETAZEPAM
     Indication: PRODUCT USED FOR UNKNOWN INDICATION
     Route: 065
  3. INVEGA [Suspect]
     Active Substance: PALIPERIDONE
     Indication: PSYCHOTIC DISORDER
     Route: 048
     Dates: start: 20141003
  4. INVEGA [Suspect]
     Active Substance: PALIPERIDONE
     Indication: PSYCHOTIC DISORDER
     Route: 048
     Dates: end: 20140903
  5. INVEGA [Suspect]
     Active Substance: PALIPERIDONE
     Indication: PSYCHOTIC DISORDER
     Route: 048
     Dates: start: 20140903, end: 20141003
  6. INVEGA [Suspect]
     Active Substance: PALIPERIDONE
     Indication: PSYCHOTIC DISORDER
     Route: 048
     Dates: start: 20140331

REACTIONS (3)
  - Psychomotor hyperactivity [Unknown]
  - Amenorrhoea [Not Recovered/Not Resolved]
  - Restlessness [Recovered/Resolved]

NARRATIVE: CASE EVENT DATE: 20140430
